FAERS Safety Report 21766047 (Version 1)
Quarter: 2022Q4

REPORT INFORMATION
  Report Type: Spontaneous
  Country: ES (occurrence: ES)
  Receive Date: 20221222
  Receipt Date: 20221222
  Transmission Date: 20230113
  Serious: Yes (Hospitalization, Other)
  Sender: FDA-Public Use
  Company Number: ES-PFIZER INC-202201386428

PATIENT
  Age: 33 Year
  Sex: Female

DRUGS (1)
  1. IDARUBICIN HYDROCHLORIDE [Suspect]
     Active Substance: IDARUBICIN HYDROCHLORIDE
     Indication: Myeloid leukaemia
     Dosage: 12 MG/M2/D D1-3

REACTIONS (2)
  - Septic shock [Unknown]
  - Colitis [Unknown]
